FAERS Safety Report 12626625 (Version 1)
Quarter: 2016Q3

REPORT INFORMATION
  Report Type: Spontaneous
  Country: US (occurrence: US)
  Receive Date: 20160805
  Receipt Date: 20160805
  Transmission Date: 20161109
  Serious: Yes (Other)
  Sender: FDA-Public Use
  Company Number: US-PFIZER INC-2016358613

PATIENT
  Age: 32 Year
  Sex: Female

DRUGS (2)
  1. PHENTOLAMINE [Concomitant]
     Active Substance: PHENTOLAMINE
     Indication: BLOOD PRESSURE INCREASED
     Dosage: UNK
  2. DOPAMINE HCL [Suspect]
     Active Substance: DOPAMINE HYDROCHLORIDE
     Indication: BLOOD PRESSURE MANAGEMENT
     Dosage: UNK

REACTIONS (2)
  - Cardiomyopathy [Recovered/Resolved]
  - Cardiogenic shock [Recovered/Resolved]
